FAERS Safety Report 4503806-3 (Version None)
Quarter: 2004Q4

REPORT INFORMATION
  Report Type: 
  Country: None (occurrence: None)
  Receive Date: 20041115
  Receipt Date: 20041103
  Transmission Date: 20050328
  Serious: Yes (Other)
  Sender: FDA-Public Use
  Company Number: 04FRA0249

PATIENT
  Age: 61 Year
  Sex: Male

DRUGS (4)
  1. AGGRASTAT [Suspect]
     Indication: ACUTE CORONARY SYNDROME
     Dosage: 0.4 MCG/KG/MIN
     Dates: start: 20041030, end: 20041030
  2. ASPIRIN [Concomitant]
  3. CLOPIDOGREL BISULFATE [Concomitant]
  4. HEPARIN [Concomitant]

REACTIONS (4)
  - CORONARY ARTERY STENOSIS [None]
  - PETECHIAE [None]
  - PURPURA [None]
  - THROMBOCYTOPENIA [None]
